FAERS Safety Report 9892323 (Version 3)
Quarter: 2014Q1

REPORT INFORMATION
  Report Type: Spontaneous
  Country: CA (occurrence: CA)
  Receive Date: 20140212
  Receipt Date: 20140304
  Transmission Date: 20141002
  Serious: Yes (Death, Hospitalization)
  Sender: FDA-Public Use
  Company Number: US-VERTEX PHARMACEUTICALS INC-2014-000658

PATIENT
  Age: 62 Year
  Sex: Male

DRUGS (8)
  1. INCIVEK [Suspect]
     Indication: HEPATITIS C
     Dosage: 750 MG, TID
     Route: 048
     Dates: start: 20140122, end: 20140205
  2. PEGASYS [Suspect]
     Indication: HEPATITIS C
     Dosage: 180 ?G, QW
     Route: 058
     Dates: start: 20140122, end: 20140205
  3. RIBAVIRIN [Suspect]
     Indication: HEPATITIS C
     Dosage: 1200 MG, QD
     Route: 048
     Dates: start: 20140122, end: 20140205
  4. SPIRIVA [Concomitant]
  5. SALBUTAMOL [Concomitant]
  6. SPIRONOLACTONE [Concomitant]
  7. OXYCONTIN [Concomitant]
  8. FUROSEMIDE [Concomitant]

REACTIONS (4)
  - Cardiac arrest [Fatal]
  - Haematemesis [Unknown]
  - Abdominal pain [Unknown]
  - Varices oesophageal [Unknown]
